FAERS Safety Report 5597442-8 (Version None)
Quarter: 2007Q4

REPORT INFORMATION
  Report Type: 
  Country: None (occurrence: None)
  Receive Date: 20071221
  Receipt Date: 20071119
  Transmission Date: 20080405
  Serious: No
  Sender: FDA-Public Use
  Company Number: SPV1-2007-04167

PATIENT
  Age: 38 Year
  Sex: Female
  Weight: 57.1 kg

DRUGS (3)
  1. VYVANSE [Suspect]
     Indication: ATTENTION DEFICIT/HYPERACTIVITY DISORDER
     Dosage: 30 MG, 1X/DAY:QD, ORAL ; 30 MG CAPSULE CUT IN HALF, ORAL
     Route: 048
     Dates: start: 20070912, end: 20070913
  2. VYVANSE [Suspect]
     Indication: ATTENTION DEFICIT/HYPERACTIVITY DISORDER
     Dosage: 30 MG, 1X/DAY:QD, ORAL ; 30 MG CAPSULE CUT IN HALF, ORAL
     Route: 048
  3. AMBIEN [Concomitant]

REACTIONS (5)
  - FEELING JITTERY [None]
  - NERVOUSNESS [None]
  - OFF LABEL USE [None]
  - TREMOR [None]
  - WRONG TECHNIQUE IN DRUG USAGE PROCESS [None]
